FAERS Safety Report 6524431-9 (Version None)
Quarter: 2010Q1

REPORT INFORMATION
  Report Type: 
  Country: None (occurrence: None)
  Receive Date: 20100104
  Receipt Date: 20091223
  Transmission Date: 20100710
  Serious: Yes (Hospitalization)
  Sender: FDA-Public Use
  Company Number: US-ELI_LILLY_AND_COMPANY-US200912004270

PATIENT
  Sex: Male
  Weight: 78.458 kg

DRUGS (14)
  1. PEMETREXED [Suspect]
     Indication: NON-SMALL CELL LUNG CANCER
     Dosage: 500 MG/M2, OTHER
     Route: 042
     Dates: start: 20090811, end: 20091016
  2. PEMETREXED [Suspect]
     Dosage: 500 MG/M2, OTHER
     Route: 042
     Dates: start: 20091106
  3. CARBOPLATIN [Suspect]
     Indication: NON-SMALL CELL LUNG CANCER
     Dosage: 6 D/F, OTHER
     Route: 042
     Dates: start: 20090811, end: 20091016
  4. BEVACIZUMAB [Suspect]
     Indication: NON-SMALL CELL LUNG CANCER
     Dosage: 15 MG/KG, OTHER
     Route: 042
     Dates: start: 20090811, end: 20091016
  5. BEVACIZUMAB [Suspect]
     Dosage: 15 MG/KG, OTHER
     Route: 042
     Dates: start: 20091106, end: 20091201
  6. ZAPONEX [Concomitant]
     Indication: ASTHMA
     Dates: start: 20090601
  7. ALBUTEROL [Concomitant]
     Indication: ASTHMA
     Dates: start: 20090101
  8. ADVAIR DISKUS 100/50 [Concomitant]
     Indication: ASTHMA
     Dates: start: 20090501
  9. SINGULAIR [Concomitant]
     Indication: ASTHMA
     Dates: start: 20090501
  10. FOLIC ACID [Concomitant]
     Indication: PROPHYLAXIS
     Dates: start: 20090720
  11. PULMOZYME [Concomitant]
     Indication: ASTHMA
     Dates: start: 20090801
  12. ZOMETA [Concomitant]
     Indication: PROPHYLAXIS
     Dates: start: 20090817
  13. MIRALAX [Concomitant]
     Indication: CONSTIPATION
     Dates: start: 20090911
  14. SENOKOT [Concomitant]
     Indication: CONSTIPATION
     Dates: start: 20090908

REACTIONS (1)
  - PULMONARY HAEMORRHAGE [None]
